FAERS Safety Report 8014318-7 (Version None)
Quarter: 2011Q4

REPORT INFORMATION
  Report Type: 
  Country: None (occurrence: None)
  Receive Date: 20111229
  Receipt Date: 20111226
  Transmission Date: 20120403
  Serious: Yes (Other)
  Sender: FDA-Public Use
  Company Number: FR-PFIZER INC-2011176843

PATIENT
  Age: 50 Year
  Sex: Male
  Weight: 68 kg

DRUGS (6)
  1. THALIDOMIDE [Concomitant]
     Dosage: 50 MG, 2X/DAY
     Route: 048
  2. EZETIMIBE [Concomitant]
     Dosage: UNK
     Route: 048
  3. TAKADOL [Concomitant]
     Dosage: 100 MG, UNK
     Route: 048
  4. MYOLASTAN [Concomitant]
     Dosage: UNKNOWN
     Route: 048
  5. VARENICLINE TARTRATE [Suspect]
     Dosage: 1 MG, 2X/DAY
     Dates: start: 20110601
  6. PREVISCAN [Concomitant]
     Dosage: 20 MG, UNK
     Route: 048

REACTIONS (2)
  - RASH PUSTULAR [None]
  - APHTHOUS STOMATITIS [None]
